FAERS Safety Report 9324009 (Version 1)
Quarter: 2013Q2

REPORT INFORMATION
  Report Type: Spontaneous
  Country: FR (occurrence: FR)
  Receive Date: 20130603
  Receipt Date: 20130603
  Transmission Date: 20140414
  Serious: Yes (Hospitalization)
  Sender: FDA-Public Use
  Company Number: FR-PFIZER INC-2013162653

PATIENT
  Age: 29 Year
  Sex: Female

DRUGS (4)
  1. IBUPROFEN [Suspect]
     Dosage: 10 G, SINGLE
     Route: 048
     Dates: start: 20121217
  2. EFFEXOR [Suspect]
     Dosage: UNK
     Route: 048
  3. BACLOFEN [Suspect]
     Route: 048
  4. PARACETAMOL [Suspect]
     Dosage: 4 G, SINGLE
     Route: 048
     Dates: start: 20121217

REACTIONS (2)
  - Alcohol abuse [Not Recovered/Not Resolved]
  - Coma [Recovered/Resolved]
